FAERS Safety Report 8389343-7 (Version None)
Quarter: 2012Q2

REPORT INFORMATION
  Report Type: 
  Country: None (occurrence: None)
  Receive Date: 20120528
  Receipt Date: 20120522
  Transmission Date: 20120825
  Serious: Yes (Other)
  Sender: FDA-Public Use
  Company Number: PHHY2012MX045184

PATIENT
  Sex: Female

DRUGS (3)
  1. EXFORGE [Suspect]
     Indication: HYPERTENSION
     Dosage: 1 TABLET (160/5MG) A DAY
     Dates: start: 20100501
  2. LOSARTAN POTASSIUM [Concomitant]
     Indication: DEPRESSION
     Dosage: UNK
  3. DIAZEPAM [Concomitant]
     Indication: DEPRESSION
     Dosage: UNK UKN, QD

REACTIONS (7)
  - OEDEMA PERIPHERAL [None]
  - PAIN IN EXTREMITY [None]
  - SPINAL CORD HERNIATION [None]
  - JOINT SWELLING [None]
  - DRY MOUTH [None]
  - LOWER LIMB FRACTURE [None]
  - SPINAL PAIN [None]
